FAERS Safety Report 7482018-8 (Version None)
Quarter: 2011Q2

REPORT INFORMATION
  Report Type: 
  Country: None (occurrence: None)
  Receive Date: 20110516
  Receipt Date: 20110511
  Transmission Date: 20111010
  Serious: Yes (Life-Threatening, Hospitalization)
  Sender: FDA-Public Use
  Company Number: FR-BRISTOL-MYERS SQUIBB COMPANY-15540511

PATIENT
  Age: 74 Year
  Sex: Female

DRUGS (4)
  1. IRBESARTAN + HYDROCHLOROTHIAZIDE [Suspect]
     Dosage: 1DF:300/12.5MG
     Route: 048
  2. VOLTAREN [Suspect]
     Dosage: 1DF=75 MG/3 ML
     Route: 058
  3. METFORMIN HCL [Suspect]
     Route: 048
  4. LASIX [Suspect]
     Route: 048

REACTIONS (5)
  - ARRHYTHMIA SUPRAVENTRICULAR [None]
  - ELECTROCARDIOGRAM T WAVE PEAKED [None]
  - RENAL FAILURE ACUTE [None]
  - HYPERKALAEMIA [None]
  - LACTIC ACIDOSIS [None]
